FAERS Safety Report 18806898 (Version 3)
Quarter: 2021Q3

REPORT INFORMATION
  Report Type: Spontaneous
  Country: US (occurrence: US)
  Receive Date: 20210129
  Receipt Date: 20210812
  Transmission Date: 20211014
  Serious: No
  Sender: FDA-Public Use
  Company Number: US-FOAMIX PHARMACEUTICALS LTD.-2021US000117

PATIENT

DRUGS (2)
  1. TRETINOIN. [Concomitant]
     Active Substance: TRETINOIN
     Indication: ACNE
     Dosage: ONCE EVERY EVENING TO THE FACE AND NECK
     Route: 061
     Dates: end: 20201228
  2. AMZEEQ [Suspect]
     Active Substance: MINOCYCLINE HYDROCHLORIDE
     Indication: ACNE
     Dosage: ONCE EVERY MORNING TO THE LOWER HALF OF FACE AND NECK
     Route: 065
     Dates: start: 20201219, end: 20201228

REACTIONS (3)
  - Skin burning sensation [Recovered/Resolved]
  - Application site swelling [Unknown]
  - Application site erythema [Recovered/Resolved]

NARRATIVE: CASE EVENT DATE: 20201228
